FAERS Safety Report 8175874 (Version 2)
Quarter: 2013Q2

REPORT INFORMATION
  Report Type: Spontaneous
  Country: US (occurrence: US)
  Receive Date: 20111011
  Receipt Date: 20130506
  Transmission Date: 20140414
  Serious: No
  Sender: FDA-Public Use
  Company Number: US-BIOGENIDEC-2011BI038362

PATIENT
  Age: 46 Year
  Sex: Male

DRUGS (8)
  1. AVONEX [Suspect]
     Indication: MULTIPLE SCLEROSIS
     Route: 030
     Dates: end: 200308
  2. AVONEX [Suspect]
     Indication: MULTIPLE SCLEROSIS
     Route: 030
     Dates: start: 200308, end: 20110701
  3. AVONEX [Suspect]
     Indication: MULTIPLE SCLEROSIS
     Route: 030
  4. LEVOTHYROXINE [Concomitant]
     Indication: THYROID DISORDER
     Dates: start: 2005
  5. BLOOD PRESSURE MEDICINE (NOS) [Concomitant]
     Indication: HYPERTENSION
  6. XANAX [Concomitant]
     Indication: AGITATION
     Dates: start: 1996
  7. XANAX [Concomitant]
     Indication: AGITATION
     Dates: start: 1996
  8. XANAX [Concomitant]
     Indication: VISUAL IMPAIRMENT
     Dates: start: 1996

REACTIONS (10)
  - Agitation [Recovered/Resolved]
  - Visual impairment [Recovered/Resolved]
  - Thyroid disorder [Recovered/Resolved]
  - Hypertension [Not Recovered/Not Resolved]
  - Nervousness [Recovered/Resolved]
  - Paranoia [Recovered/Resolved]
  - Feeling jittery [Recovered/Resolved]
  - Gait disturbance [Not Recovered/Not Resolved]
  - Tremor [Not Recovered/Not Resolved]
  - Anxiety [Recovered/Resolved]
